FAERS Safety Report 10791806 (Version 2)
Quarter: 2017Q3

REPORT INFORMATION
  Report Type: Report from Study
  Country: US (occurrence: US)
  Receive Date: 20150213
  Receipt Date: 20170710
  Transmission Date: 20171127
  Serious: Yes (Hospitalization, Other)
  Sender: FDA-Public Use
  Company Number: US-ROCHE-1535213

PATIENT

DRUGS (2)
  1. RITUXIMAB. [Suspect]
     Active Substance: RITUXIMAB
     Indication: NON-HODGKIN^S LYMPHOMA REFRACTORY
     Dosage: DAY 1 OF CYCLE 5-12 (COHORT A) AND DAY 1 OF CYCLE 3-8 (IN COHORT B)
     Route: 042
  2. ALISERTIB [Suspect]
     Active Substance: ALISERTIB
     Indication: NON-HODGKIN^S LYMPHOMA REFRACTORY
     Dosage: ON DAYS 1-7 OF A 21 DAY CYCLE
     Route: 048

REACTIONS (15)
  - Pneumonitis [Unknown]
  - Mucosal inflammation [Unknown]
  - Thrombocytopenia [Unknown]
  - Dyspnoea [Unknown]
  - Dehydration [Unknown]
  - Hypoxia [Unknown]
  - Neutropenia [Unknown]
  - Cough [Unknown]
  - Lymphopenia [Unknown]
  - Cystitis [Unknown]
  - Hyponatraemia [Unknown]
  - Fatigue [Unknown]
  - Pancreatitis [Unknown]
  - Embolism [Unknown]
  - Febrile neutropenia [Unknown]
